FAERS Safety Report 17437447 (Version 4)
Quarter: 2020Q3

REPORT INFORMATION
  Report Type: Spontaneous
  Country: CA (occurrence: CA)
  Receive Date: 20200219
  Receipt Date: 20200825
  Transmission Date: 20201102
  Serious: Yes (Hospitalization)
  Sender: FDA-Public Use
  Company Number: CA-ACTELION-A-NJ2020-201790

PATIENT
  Age: 62 Year
  Sex: Female
  Weight: 86.17 kg

DRUGS (14)
  1. OXYGEN. [Concomitant]
     Active Substance: OXYGEN
  2. SIMVASTATIN. [Concomitant]
     Active Substance: SIMVASTATIN
     Dosage: 20 MG, QD
  3. COZAAR [Concomitant]
     Active Substance: LOSARTAN POTASSIUM
  4. TYLENOL [Concomitant]
     Active Substance: ACETAMINOPHEN
  5. CARIPUL [Suspect]
     Active Substance: EPOPROSTENOL
     Indication: DYSPNOEA
     Dosage: 24 NG/KG, PER MIN
     Route: 042
  6. PANTOPRAZOLE [Concomitant]
     Active Substance: PANTOPRAZOLE
     Dosage: 40 MG
  7. ALLOPURINOL. [Concomitant]
     Active Substance: ALLOPURINOL
     Dosage: 50 MG
  8. CARIPUL [Suspect]
     Active Substance: EPOPROSTENOL
     Indication: PULMONARY ARTERIAL HYPERTENSION
     Dosage: 30000 NG/ML
     Route: 042
     Dates: start: 20190422
  9. AMLODIPINE [Concomitant]
     Active Substance: AMLODIPINE BESYLATE
  10. FUROSEMIDE. [Concomitant]
     Active Substance: FUROSEMIDE
     Dosage: 80 MG, BID
  11. SILDENAFIL. [Concomitant]
     Active Substance: SILDENAFIL
     Dosage: 45 MG, TID
  12. VITAMIN D [Concomitant]
     Active Substance: VITAMIN D NOS
  13. COLCHICINE. [Concomitant]
     Active Substance: COLCHICINE
  14. SPIRONOLACTONE. [Concomitant]
     Active Substance: SPIRONOLACTONE
     Dosage: 12.5 MG, QD
     Dates: end: 20200728

REACTIONS (4)
  - Polyuria [Recovered/Resolved]
  - Fluid overload [Recovered/Resolved]
  - Drug titration [Recovered/Resolved]
  - Transplant evaluation [Not Recovered/Not Resolved]

NARRATIVE: CASE EVENT DATE: 20200714
